FAERS Safety Report 25670962 (Version 1)
Quarter: 2025Q3

REPORT INFORMATION
  Report Type: Spontaneous
  Country: GD (occurrence: GD)
  Receive Date: 20250812
  Receipt Date: 20250812
  Transmission Date: 20251021
  Serious: Yes (Other)
  Sender: GLAND PHARMA LTD
  Company Number: GD-GLANDPHARMA-GD-2025GLNLIT01664

PATIENT
  Age: 32 Year
  Sex: Male

DRUGS (13)
  1. DOXYCYCLINE [Suspect]
     Active Substance: DOXYCYCLINE
     Indication: Cough
     Route: 065
  2. DOXYCYCLINE [Suspect]
     Active Substance: DOXYCYCLINE
     Indication: Dyspnoea
  3. DOXYCYCLINE [Suspect]
     Active Substance: DOXYCYCLINE
     Indication: Chest pain
  4. DOXYCYCLINE [Suspect]
     Active Substance: DOXYCYCLINE
     Indication: Antibiotic therapy
  5. IBUPROFEN [Suspect]
     Active Substance: IBUPROFEN
     Indication: Cough
     Route: 065
  6. IBUPROFEN [Suspect]
     Active Substance: IBUPROFEN
     Indication: Chest pain
  7. IBUPROFEN [Suspect]
     Active Substance: IBUPROFEN
     Indication: Chest pain
  8. IBUPROFEN [Suspect]
     Active Substance: IBUPROFEN
     Indication: Cough
  9. IBUPROFEN [Suspect]
     Active Substance: IBUPROFEN
     Indication: Chest pain
  10. IBUPROFEN [Suspect]
     Active Substance: IBUPROFEN
     Indication: Chest pain
  11. ALBUTEROL [Concomitant]
     Active Substance: ALBUTEROL
     Indication: Cough
     Route: 065
  12. ALBUTEROL [Concomitant]
     Active Substance: ALBUTEROL
  13. ALBUTEROL [Concomitant]
     Active Substance: ALBUTEROL
     Indication: Chest pain

REACTIONS (1)
  - Eosinophilic pneumonia acute [Recovered/Resolved]
